FAERS Safety Report 9245879 (Version 1)
Quarter: 2013Q2

REPORT INFORMATION
  Report Type: Spontaneous
  Country: US (occurrence: US)
  Receive Date: 20130422
  Receipt Date: 20130422
  Transmission Date: 20140414
  Serious: No
  Sender: FDA-Public Use
  Company Number: US-ASTELLAS-2012US010376

PATIENT
  Age: 62 Year
  Sex: Male

DRUGS (2)
  1. LEXISCAN [Suspect]
     Indication: SCAN MYOCARDIAL PERFUSION
     Dosage: UNK
     Route: 042
     Dates: start: 20121012, end: 20121012
  2. LEXISCAN [Suspect]
     Dosage: UNK
     Route: 042
     Dates: start: 20121012, end: 20121012

REACTIONS (1)
  - Infusion site pain [Recovered/Resolved]
